FAERS Safety Report 11128904 (Version 1)
Quarter: 2015Q2

REPORT INFORMATION
  Report Type: Report from Study
  Country: CZ (occurrence: CZ)
  Receive Date: 20150521
  Receipt Date: 20150521
  Transmission Date: 20150821
  Serious: Yes (Other)
  Sender: FDA-Public Use
  Company Number: CZ-BAYER-2015-200315

PATIENT
  Age: 35 Year
  Sex: Female
  Weight: 64 kg

DRUGS (3)
  1. MIRENA [Suspect]
     Active Substance: LEVONORGESTREL
     Dosage: 20 MCG/24HR, QD
     Route: 015
     Dates: start: 20150123, end: 20150416
  2. DOXYHEXAL [DOXYCYCLINE HYDROCHLORIDE] [Concomitant]
     Dosage: 100 MG, BID
     Route: 048
     Dates: start: 20141229
  3. KLION D [Concomitant]
     Indication: VAGINAL INFECTION
     Route: 067

REACTIONS (6)
  - Genital disorder female [Not Recovered/Not Resolved]
  - Vaginal haemorrhage [Not Recovered/Not Resolved]
  - Off label use of device [Recovered/Resolved]
  - Device expulsion [Recovered/Resolved]
  - Device expulsion [Recovered/Resolved]
  - Ovarian cyst [None]

NARRATIVE: CASE EVENT DATE: 20150123
